FAERS Safety Report 4445395-8 (Version None)
Quarter: 2004Q3

REPORT INFORMATION
  Report Type: 
  Country: None (occurrence: None)
  Receive Date: 20040729
  Receipt Date: 20040227
  Transmission Date: 20050211
  Serious: No
  Sender: FDA-Public Use
  Company Number: 2004UW03606

PATIENT
  Age: 44 Year
  Sex: Female
  Weight: 158.759 kg

DRUGS (2)
  1. ELAVIL [Suspect]
     Dates: start: 19920101
  2. ATIVAN [Concomitant]

REACTIONS (2)
  - CONVULSION [None]
  - MENTAL IMPAIRMENT [None]
